FAERS Safety Report 24846324 (Version 1)
Quarter: 2025Q1

REPORT INFORMATION
  Report Type: Spontaneous
  Country: US (occurrence: US)
  Receive Date: 20250115
  Receipt Date: 20250115
  Transmission Date: 20250408
  Serious: No
  Sender: Haleon PLC
  Company Number: US-HALEON-2221956

PATIENT

DRUGS (1)
  1. NICODERM CQ [Suspect]
     Active Substance: NICOTINE
     Indication: Smoking cessation therapy

REACTIONS (3)
  - Wrong technique in product usage process [Unknown]
  - Poor quality product administered [Unknown]
  - Product complaint [Unknown]
